FAERS Safety Report 4765253-9 (Version None)
Quarter: 2005Q3

REPORT INFORMATION
  Report Type: 
  Country: None (occurrence: None)
  Receive Date: 20050906
  Receipt Date: 20050819
  Transmission Date: 20060218
  Serious: Yes (Other)
  Sender: FDA-Public Use
  Company Number: GBS050818236

PATIENT
  Age: 58 Year
  Sex: Male

DRUGS (3)
  1. CYMBALTA [Suspect]
     Indication: DEPRESSION
     Dosage: 60 MG
     Dates: start: 20050303
  2. BECLOMETHASONE DIPROPIONATE [Concomitant]
  3. ALBUTEROL SULFATE HFA [Concomitant]

REACTIONS (4)
  - ANXIETY [None]
  - EJACULATION DISORDER [None]
  - ERECTILE DYSFUNCTION [None]
  - GENITAL BURNING SENSATION [None]
